FAERS Safety Report 8583243-5 (Version None)
Quarter: 2012Q3

REPORT INFORMATION
  Report Type: 
  Country: None (occurrence: None)
  Receive Date: 20120809
  Receipt Date: 20120802
  Transmission Date: 20120928
  Serious: Yes (Other)
  Sender: FDA-Public Use
  Company Number: FR-JNJFOC-20120804204

PATIENT
  Age: 79 Year
  Sex: Female
  Weight: 106 kg

DRUGS (7)
  1. XARELTO [Suspect]
     Indication: HIP ARTHROPLASTY
     Route: 048
     Dates: start: 20120613, end: 20120615
  2. XARELTO [Suspect]
     Indication: THROMBOSIS PROPHYLAXIS
     Route: 048
     Dates: start: 20120613, end: 20120615
  3. IRBESARTAN AND HYDROCHLOROTHIAZIDE [Concomitant]
     Route: 048
  4. GLUCOPHAGE [Concomitant]
     Dates: end: 20120601
  5. BIONOLYTE [Concomitant]
     Route: 042
     Dates: start: 20120613, end: 20120615
  6. OMEPRAZOLE [Concomitant]
     Route: 042
     Dates: start: 20120613, end: 20120614
  7. PLAVIX [Concomitant]
     Dates: end: 20120601

REACTIONS (1)
  - DEEP VEIN THROMBOSIS [None]
